FAERS Safety Report 8687053 (Version 3)
Quarter: 2012Q4

REPORT INFORMATION
  Report Type: 
  Country: US (occurrence: US)
  Receive Date: 20120727
  Receipt Date: 20120919
  Transmission Date: 20130627
  Serious: Yes (Other)
  Sender: FDA-Public Use
  Company Number: US-BAYER-2012-073876

PATIENT
  Age: 33 Year
  Sex: Female
  Weight: 97.05 kg

DRUGS (1)
  1. MIRENA [Suspect]
     Indication: CONTRACEPTION
     Dosage: 20 mcg/24hr, CONT
     Route: 015
     Dates: start: 200702

REACTIONS (4)
  - Device dislocation [Not Recovered/Not Resolved]
  - Procedural pain [Not Recovered/Not Resolved]
  - Device breakage [None]
  - Complication of device removal [None]
